FAERS Safety Report 8597697-1 (Version None)
Quarter: 2012Q3

REPORT INFORMATION
  Report Type: 
  Country: None (occurrence: None)
  Receive Date: 20120816
  Receipt Date: 20120813
  Transmission Date: 20120928
  Serious: Yes (Other)
  Sender: FDA-Public Use
  Company Number: KR-PFIZER INC-2012197459

PATIENT
  Sex: Male

DRUGS (1)
  1. XANAX [Suspect]
     Dosage: 0.125 MG (0.25MG IN HALF), 2X/DAY
     Route: 048

REACTIONS (2)
  - AMNESIA [None]
  - BRAIN INJURY [None]
